FAERS Safety Report 8625035-4 (Version None)
Quarter: 2012Q3

REPORT INFORMATION
  Report Type: 
  Country: None (occurrence: None)
  Receive Date: 20120827
  Receipt Date: 20120823
  Transmission Date: 20120928
  Serious: Yes (Life-Threatening, Other)
  Sender: FDA-Public Use
  Company Number: JP-B.I. PHARMACEUTICALS,INC./RIDGEFIELD-2012-BP-15456NB

PATIENT
  Sex: Female
  Weight: 43.4 kg

DRUGS (3)
  1. DIGOXIN [Concomitant]
     Dosage: 0.125 MG
     Route: 048
     Dates: start: 20120606, end: 20120705
  2. ZOLPIDEM [Concomitant]
     Dosage: 5 MG
     Route: 048
     Dates: start: 20120606, end: 20120705
  3. PRADAXA [Suspect]
     Indication: THROMBOSIS PROPHYLAXIS
     Dosage: 220 MG
     Route: 048
     Dates: start: 20120613, end: 20120705

REACTIONS (2)
  - PUTAMEN HAEMORRHAGE [None]
  - PNEUMONIA [None]
